FAERS Safety Report 17323994 (Version 2)
Quarter: 2020Q2

REPORT INFORMATION
  Report Type: Report from Study
  Country: US (occurrence: US)
  Receive Date: 20200127
  Receipt Date: 20200630
  Transmission Date: 20200713
  Serious: Yes (Hospitalization, Other)
  Sender: FDA-Public Use
  Company Number: US-ROCHE-2528569

PATIENT
  Age: 88 Year
  Sex: Male
  Weight: 79.7 kg

DRUGS (1)
  1. ATEZOLIZUMAB. [Suspect]
     Active Substance: ATEZOLIZUMAB
     Indication: BLADDER CANCER
     Dosage: OVER 60 MIN ON DAY 1.
     Route: 042
     Dates: start: 20190501, end: 20190612

REACTIONS (6)
  - Oedema peripheral [Recovering/Resolving]
  - Encephalopathy [Recovered/Resolved]
  - Acute kidney injury [Recovered/Resolved]
  - Brain oedema [Recovered/Resolved]
  - Peroneal nerve palsy [Not Recovered/Not Resolved]
  - Mental status changes [Recovered/Resolved]

NARRATIVE: CASE EVENT DATE: 20190614
